FAERS Safety Report 8843474 (Version 1)
Quarter: 2012Q4

REPORT INFORMATION
  Report Type: 
  Country: US (occurrence: US)
  Receive Date: 20121016
  Receipt Date: 20121016
  Transmission Date: 20130627
  Serious: No
  Sender: FDA-Public Use
  Company Number: US-MYLANLABS-2011S1019140

PATIENT
  Sex: Male

DRUGS (5)
  1. METFORMIN HCL EXTENDED-RELEASE TABLETS [Suspect]
     Indication: DIABETES MELLITUS
     Route: 048
     Dates: start: 201107
  2. METFORMIN HCL EXTENDED-RELEASE TABLETS [Suspect]
     Indication: DIABETES MELLITUS
     Route: 048
     Dates: start: 201107
  3. LOVASTATIN [Concomitant]
     Route: 048
  4. LISINOPRIL + HYDROCHLOROTHIAZIDE [Concomitant]
     Route: 048
  5. GLIPIZIDE ER [Concomitant]
     Route: 048

REACTIONS (2)
  - Blood glucose increased [Not Recovered/Not Resolved]
  - Medication residue [Not Recovered/Not Resolved]
